FAERS Safety Report 24128324 (Version 1)
Quarter: 2024Q3

REPORT INFORMATION
  Report Type: Spontaneous
  Country: RU (occurrence: RU)
  Receive Date: 20240723
  Receipt Date: 20240723
  Transmission Date: 20241016
  Serious: Yes (Death, Other)
  Sender: MERCK
  Company Number: RU-009507513-2407RUS011466

PATIENT
  Age: 76 Year
  Sex: Female

DRUGS (1)
  1. PEMBROLIZUMAB [Suspect]
     Active Substance: PEMBROLIZUMAB
     Indication: Gastric cancer stage IV
     Dosage: UNK
     Route: 065
     Dates: start: 202403, end: 202403

REACTIONS (3)
  - Haemolytic anaemia [Fatal]
  - Malignant neoplasm progression [Unknown]
  - Ascites [Unknown]

NARRATIVE: CASE EVENT DATE: 20240101
